FAERS Safety Report 12913584 (Version 11)
Quarter: 2017Q2

REPORT INFORMATION
  Report Type: Spontaneous
  Country: US (occurrence: US)
  Receive Date: 20161104
  Receipt Date: 20170627
  Transmission Date: 20170830
  Serious: No
  Sender: FDA-Public Use
  Company Number: US-ACTELION-A-US2016-144937

PATIENT
  Age: 78 Year
  Sex: Female
  Weight: 57.14 kg

DRUGS (2)
  1. WARFARIN [Concomitant]
     Active Substance: WARFARIN
  2. OPSUMIT [Suspect]
     Active Substance: MACITENTAN
     Indication: PULMONARY HYPERTENSION
     Dosage: 10 MG, QD
     Route: 048
     Dates: start: 20160921, end: 201705

REACTIONS (26)
  - Upper respiratory tract infection [Unknown]
  - Anaemia [Unknown]
  - Red blood cell count decreased [Unknown]
  - Epistaxis [Unknown]
  - Food poisoning [Unknown]
  - Gastrooesophageal reflux disease [Unknown]
  - Gastrointestinal disorder [Unknown]
  - Influenza [Unknown]
  - Cough [Unknown]
  - Fatigue [Unknown]
  - Asthenia [Unknown]
  - Vaccination complication [Unknown]
  - Choking [Unknown]
  - Sinusitis [Unknown]
  - Productive cough [Unknown]
  - Haemoglobin decreased [Unknown]
  - Insomnia [Unknown]
  - Decreased appetite [Unknown]
  - Chest X-ray abnormal [Unknown]
  - Nausea [Unknown]
  - Pain [Unknown]
  - Medication error [Unknown]
  - Nasal congestion [Unknown]
  - Respiratory tract congestion [Unknown]
  - Influenza like illness [Unknown]
  - Malaise [Unknown]

NARRATIVE: CASE EVENT DATE: 20161206
